FAERS Safety Report 21379991 (Version 3)
Quarter: 2023Q2

REPORT INFORMATION
  Report Type: Spontaneous
  Country: US (occurrence: US)
  Receive Date: 20220927
  Receipt Date: 20230524
  Transmission Date: 20230722
  Serious: Yes (Hospitalization, Other)
  Sender: FDA-Public Use
  Company Number: US-BRISTOL-MYERS SQUIBB COMPANY-2022-112042

PATIENT
  Age: 74 Year
  Sex: Female

DRUGS (5)
  1. REVLIMID [Suspect]
     Active Substance: LENALIDOMIDE
     Indication: Plasma cell myeloma
     Dosage: TAKE 5MG BY MOUTH EVERY OTHER DAY FOR 21 DAYS.THEN TAKE 7 DAYS OFF
     Route: 048
     Dates: start: 20190912
  2. ELIQUIS [Concomitant]
     Active Substance: APIXABAN
     Indication: Product used for unknown indication
  3. PILOCARPINE [Concomitant]
     Active Substance: PILOCARPINE
     Indication: Product used for unknown indication
     Dosage: PILOCARPINE SOL 1% OP
  4. PILOCARPINE [Concomitant]
     Active Substance: PILOCARPINE
  5. CIPROFLOXACIN [Concomitant]
     Active Substance: CIPROFLOXACIN
     Indication: Product used for unknown indication

REACTIONS (4)
  - Pneumonia [Unknown]
  - Illness [Unknown]
  - Infection [Unknown]
  - Off label use [Unknown]
